FAERS Safety Report 23186016 (Version 1)
Quarter: 2023Q4

REPORT INFORMATION
  Report Type: Report from Study
  Country: CA (occurrence: CA)
  Receive Date: 20231115
  Receipt Date: 20231115
  Transmission Date: 20240109
  Serious: Yes (Other)
  Sender: FDA-Public Use
  Company Number: CA-MYLANLABS-2023M1121717

PATIENT
  Sex: Male
  Weight: 74.1 kg

DRUGS (1)
  1. OGIVRI [Suspect]
     Active Substance: TRASTUZUMAB-DKST
     Indication: Gallbladder adenocarcinoma
     Dosage: EVERY 2 WEEKS
     Route: 042
     Dates: start: 20230307

REACTIONS (3)
  - Gallbladder adenocarcinoma [Unknown]
  - Disease progression [Unknown]
  - Palliative care [Unknown]
